FAERS Safety Report 11195016 (Version 1)
Quarter: 2015Q2

REPORT INFORMATION
  Report Type: Spontaneous
  Country: GB (occurrence: GB)
  Receive Date: 20150617
  Receipt Date: 20150617
  Transmission Date: 20150821
  Serious: Yes (Hospitalization)
  Sender: FDA-Public Use
  Company Number: GB-MERCK-1506GBR007833

PATIENT
  Age: 29 Year
  Sex: Male

DRUGS (9)
  1. DEXAMETHASONE. [Suspect]
     Active Substance: DEXAMETHASONE
     Dosage: 6 MG, UNK
     Route: 048
     Dates: start: 201101
  2. DEXAMETHASONE. [Suspect]
     Active Substance: DEXAMETHASONE
     Dosage: 500 MICROGRAM, UNK
     Route: 048
     Dates: start: 201110
  3. DEXAMETHASONE. [Suspect]
     Active Substance: DEXAMETHASONE
     Dosage: 6 MG, UNK
     Route: 048
     Dates: start: 200912
  4. DEXAMETHASONE. [Suspect]
     Active Substance: DEXAMETHASONE
     Dosage: 12 MG, UNK
     Route: 048
     Dates: start: 201009
  5. DEXAMETHASONE. [Suspect]
     Active Substance: DEXAMETHASONE
     Dosage: 5 MG, QD
     Route: 048
     Dates: start: 201107
  6. DEXAMETHASONE. [Suspect]
     Active Substance: DEXAMETHASONE
     Dosage: 4 MG, UNK
     Route: 048
     Dates: start: 201001
  7. DEXAMETHASONE. [Suspect]
     Active Substance: DEXAMETHASONE
     Dosage: 16 MG, UNK
     Route: 048
     Dates: start: 201102
  8. DEXAMETHASONE. [Suspect]
     Active Substance: DEXAMETHASONE
     Dosage: 11MG REDUCED TO 9 MG
     Dates: start: 201104
  9. DEXAMETHASONE. [Suspect]
     Active Substance: DEXAMETHASONE
     Dosage: 16 MG DECREASED TO 5 MG DAILY
     Route: 048
     Dates: start: 201105, end: 201107

REACTIONS (2)
  - Spinal cord compression [Unknown]
  - Epidural lipomatosis [Unknown]

NARRATIVE: CASE EVENT DATE: 201105
